FAERS Safety Report 19102401 (Version 1)
Quarter: 2021Q2

REPORT INFORMATION
  Report Type: Spontaneous
  Country: US (occurrence: US)
  Receive Date: 20210407
  Receipt Date: 20210407
  Transmission Date: 20210717
  Serious: Yes (Death, Life-Threatening, Hospitalization)
  Sender: FDA-Public Use
  Company Number: None

PATIENT
  Age: 55 Year
  Sex: Male
  Weight: 67.2 kg

DRUGS (5)
  1. BELATACEPT VIAL 250 MG [Suspect]
     Active Substance: BELATACEPT
     Indication: LUNG TRANSPLANT
     Dosage: ?          OTHER FREQUENCY:Q28 DAYS;?
     Route: 041
     Dates: start: 20201009, end: 20201230
  2. BELATACEPT VIAL 250 MG [Suspect]
     Active Substance: BELATACEPT
     Indication: LUNG TRANSPLANT
     Dosage: ?          OTHER FREQUENCY:Q28 DAYS;?
     Route: 041
     Dates: start: 20200620, end: 20200911
  3. PREDNISONE 40 MG [Concomitant]
     Active Substance: PREDNISONE
  4. TACROLIMUS 4 MG BID [Concomitant]
  5. MYCOPHENOLATE 500 MG BID [Concomitant]

REACTIONS (5)
  - Transplant rejection [None]
  - Abdominal pain [None]
  - Chest pain [None]
  - Respiratory failure [None]
  - Pneumonia [None]

NARRATIVE: CASE EVENT DATE: 20210204
